FAERS Safety Report 13656223 (Version 2)
Quarter: 2017Q3

REPORT INFORMATION
  Report Type: Spontaneous
  Country: US (occurrence: US)
  Receive Date: 20170615
  Receipt Date: 20170807
  Transmission Date: 20171127
  Serious: Yes (Other)
  Sender: FDA-Public Use
  Company Number: US-PFIZER INC-2017259145

PATIENT
  Age: 61 Year
  Sex: Female

DRUGS (3)
  1. CHANTIX [Suspect]
     Active Substance: VARENICLINE TARTRATE
     Dosage: UNK
  2. NEULASTA [Concomitant]
     Active Substance: PEGFILGRASTIM
     Indication: LUNG NEOPLASM MALIGNANT
     Dosage: UNK (ONCE EVERY 3 WEEKS )
     Dates: start: 20170511
  3. NEULASTA [Concomitant]
     Active Substance: PEGFILGRASTIM
     Indication: BONE NEOPLASM

REACTIONS (1)
  - Lung neoplasm malignant [Not Recovered/Not Resolved]

NARRATIVE: CASE EVENT DATE: 20170511
